FAERS Safety Report 25158310 (Version 1)
Quarter: 2025Q2

REPORT INFORMATION
  Report Type: Spontaneous
  Country: FR (occurrence: FR)
  Receive Date: 20250404
  Receipt Date: 20250404
  Transmission Date: 20250716
  Serious: Yes (Life-Threatening, Hospitalization, Other)
  Sender: CELLTRION
  Company Number: None

PATIENT

DRUGS (4)
  1. INFLIXIMAB [Suspect]
     Active Substance: INFLIXIMAB
     Indication: Crohn^s disease
     Route: 042
     Dates: start: 20240215, end: 20240722
  2. METHOTREXATE [Suspect]
     Active Substance: METHOTREXATE
     Indication: Crohn^s disease
     Dosage: 15 MG, EVERY 1WEEK
     Route: 048
     Dates: start: 202402, end: 202409
  3. HYDROCORTISONE [Concomitant]
     Active Substance: HYDROCORTISONE
     Indication: Crohn^s disease
     Route: 042
     Dates: start: 20240215, end: 20240722
  4. FERINJECT [Concomitant]
     Active Substance: FERRIC CARBOXYMALTOSE

REACTIONS (1)
  - Dilated cardiomyopathy [Not Recovered/Not Resolved]

NARRATIVE: CASE EVENT DATE: 20240915
